FAERS Safety Report 8759847 (Version 4)
Quarter: 2013Q2

REPORT INFORMATION
  Report Type: Report from Study
  Country: JP (occurrence: JP)
  Receive Date: 20120829
  Receipt Date: 20130411
  Transmission Date: 20140414
  Serious: Yes (Other)
  Sender: FDA-Public Use
  Company Number: JP-VERTEX PHARMACEUTICAL INC.-2012-020102

PATIENT
  Age: 61 Year
  Sex: Male

DRUGS (25)
  1. VX-950 (TELAPREVIR) [Suspect]
     Indication: CHRONIC HEPATITIS C
     Dosage: 2250 MG, QD
     Route: 048
     Dates: start: 20120703, end: 20120730
  2. VX-950 (TELAPREVIR) [Suspect]
     Dosage: 1500 MG, QD
     Route: 048
     Dates: start: 20120731, end: 20120806
  3. VX-950 (TELAPREVIR) [Suspect]
     Dosage: 1500 MG, QD
     Route: 048
     Dates: start: 20120807, end: 20120924
  4. REBETOL [Suspect]
     Indication: CHRONIC HEPATITIS C
     Dosage: 600 MG, QD
     Route: 048
     Dates: start: 20120703, end: 20120724
  5. REBETOL [Suspect]
     Dosage: 400 MG, QD
     Route: 048
     Dates: start: 20120725, end: 20120731
  6. REBETOL [Suspect]
     Dosage: 200 MG, QD
     Route: 048
     Dates: start: 20120801
  7. REBETOL [Suspect]
     Dosage: 200MG, 400 MG ON ALTERNATE DAYS
     Route: 048
     Dates: start: 20121017, end: 20121030
  8. REBETOL [Suspect]
     Dosage: 400 MG, QD
     Route: 048
     Dates: start: 20121031, end: 20121112
  9. REBETOL [Suspect]
     Dosage: 600 MG, QD
     Route: 048
     Dates: start: 20121113, end: 20121217
  10. REBETOL [Suspect]
     Dosage: UNK
  11. PEGINTRON [Suspect]
     Indication: CHRONIC HEPATITIS C
     Dosage: 1.38 ?G/KG, QW
     Route: 058
     Dates: start: 20120703, end: 20120717
  12. PEGINTRON [Suspect]
     Dosage: 1.02 ?G/KG, QW
     Route: 058
     Dates: start: 20120724, end: 20120724
  13. PEGINTRON [Suspect]
     Dosage: 1.2 ?G/KG, QW
     Route: 058
     Dates: start: 20120731, end: 20120731
  14. PEGINTRON [Suspect]
     Dosage: 1.38 ?G/KG, QW
     Route: 058
     Dates: start: 20120807, end: 20120821
  15. PEGINTRON [Suspect]
     Dosage: 1.03 ?G/KG, QW
     Route: 058
     Dates: start: 20120828, end: 20120904
  16. PEGINTRON [Suspect]
     Dosage: 1.2 ?G/KG, QW
     Route: 058
     Dates: start: 20120911, end: 20121204
  17. PEGINTRON [Suspect]
     Dosage: 1.09 ?G/KG, QW
     Dates: start: 20121211, end: 20121211
  18. ROZEREM [Concomitant]
     Dosage: 8 MG, PRN
     Route: 048
     Dates: start: 20120703
  19. MUCOSTA [Concomitant]
     Dosage: 100 MG, PRN
     Route: 048
     Dates: start: 20120703
  20. LOXONIN [Concomitant]
     Dosage: 60 MG, PRN
     Route: 048
     Dates: start: 20120703
  21. OLMETEC [Concomitant]
     Dosage: 20 MG, QD
     Route: 048
     Dates: start: 20120705
  22. AMLODIN OD [Concomitant]
     Dosage: 2.5 MG, QD
     Route: 048
     Dates: start: 20120712
  23. MAGLAX [Concomitant]
     Dosage: 1 DF, QD
     Route: 048
     Dates: start: 20120802
  24. GASTROM [Concomitant]
     Dosage: 3 G, QD
     Route: 048
     Dates: start: 20120807
  25. FEBURIC [Concomitant]
     Dosage: 20 MG, QD
     Route: 048

REACTIONS (1)
  - Rash [Recovered/Resolved]
